FAERS Safety Report 6668974-6 (Version None)
Quarter: 2010Q2

REPORT INFORMATION
  Report Type: 
  Country: None (occurrence: None)
  Receive Date: 20100402
  Receipt Date: 20100324
  Transmission Date: 20101027
  Serious: Yes (Death)
  Sender: FDA-Public Use
  Company Number: 009315

PATIENT
  Age: 38 Year
  Sex: Female

DRUGS (1)
  1. LACOSAMIDE [Suspect]
     Dosage: ORAL
     Route: 048
     Dates: start: 20100101, end: 20100301

REACTIONS (1)
  - DEATH [None]
